FAERS Safety Report 21184188 (Version 1)
Quarter: 2022Q3

REPORT INFORMATION
  Report Type: Spontaneous
  Country: US (occurrence: US)
  Receive Date: 20220808
  Receipt Date: 20220808
  Transmission Date: 20221026
  Serious: No
  Sender: FDA-Public Use
  Company Number: US-GALDERMA-US2022008934

PATIENT

DRUGS (5)
  1. PROACTIV MD ADAPALENE ACNE TREATMENT [Suspect]
     Active Substance: ADAPALENE
     Indication: Skin hyperpigmentation
     Dosage: 1 DOSAGE FORM, QD
     Route: 061
     Dates: start: 20220503, end: 202205
  2. Proactiv MD Ultra Gentle Cleanser [Concomitant]
     Indication: Skin hyperpigmentation
     Dosage: 1 DOSAGE FORM, BID
     Route: 061
     Dates: start: 20220503, end: 202205
  3. Proactiv MD Ultra Hydrating Moisturizer [Concomitant]
     Indication: Skin hyperpigmentation
     Dosage: 1 DOSAGE FORM, BID
     Route: 061
     Dates: start: 20220503, end: 202205
  4. Proactiv Post Acne Scar Gel [Concomitant]
     Indication: Skin hyperpigmentation
     Dosage: 1 DOSAGE FORM, BID
     Route: 061
     Dates: start: 20220503, end: 202205
  5. FLONASE [Concomitant]
     Active Substance: FLUTICASONE PROPIONATE
     Indication: Product used for unknown indication
     Route: 065

REACTIONS (5)
  - Skin irritation [Recovering/Resolving]
  - Dry skin [Recovering/Resolving]
  - Rash [Recovering/Resolving]
  - Skin weeping [Recovering/Resolving]
  - Product use in unapproved indication [Recovered/Resolved]

NARRATIVE: CASE EVENT DATE: 20220501
